FAERS Safety Report 8357133-7 (Version None)
Quarter: 2012Q2

REPORT INFORMATION
  Report Type: 
  Country: None (occurrence: None)
  Receive Date: 20120514
  Receipt Date: 20120503
  Transmission Date: 20120825
  Serious: Yes (Life-Threatening, Hospitalization)
  Sender: FDA-Public Use
  Company Number: FR-BRISTOL-MYERS SQUIBB COMPANY-16571960

PATIENT
  Age: 75 Year
  Sex: Male

DRUGS (11)
  1. MORPHINE SULFATE [Concomitant]
  2. DIPROSONE [Concomitant]
  3. COUMADIN [Suspect]
     Indication: ATRIAL FIBRILLATION
     Route: 048
     Dates: start: 20120210, end: 20120223
  4. EZETIMIBE [Concomitant]
  5. LOSARTAN POTASSIUM [Concomitant]
  6. KAYEXALATE [Concomitant]
  7. OXAZEPAM [Concomitant]
  8. VOGALENE [Concomitant]
  9. FORTIMEL [Concomitant]
  10. SPIRONOLACTONE [Concomitant]
  11. TENORMIN [Concomitant]

REACTIONS (4)
  - GASTROINTESTINAL HAEMORRHAGE [None]
  - INTERNATIONAL NORMALISED RATIO INCREASED [None]
  - OESOPHAGITIS [None]
  - DUODENAL ULCER [None]
